FAERS Safety Report 7659175-3 (Version None)
Quarter: 2011Q3

REPORT INFORMATION
  Report Type: 
  Country: None (occurrence: None)
  Receive Date: 20110805
  Receipt Date: 20110727
  Transmission Date: 20111222
  Serious: Yes (Hospitalization)
  Sender: FDA-Public Use
  Company Number: TW-GLAXOSMITHKLINE-B0737157A

PATIENT
  Age: 50 Year
  Sex: Female

DRUGS (2)
  1. ZOVIRAX [Suspect]
     Indication: HERPES ZOSTER
     Dosage: 500MG THREE TIMES PER DAY
     Route: 042
  2. CLINDAMYCIN [Suspect]
     Dosage: 600MG THREE TIMES PER DAY
     Route: 065

REACTIONS (1)
  - VERTIGO [None]
